FAERS Safety Report 8812412 (Version 1)
Quarter: 2012Q4

REPORT INFORMATION
  Report Type: 
  Country: AU (occurrence: AU)
  Receive Date: 20120927
  Receipt Date: 20120927
  Transmission Date: 20130627
  Serious: Yes (Hospitalization)
  Sender: FDA-Public Use
  Company Number: AU-PFIZER INC-2012224593

PATIENT
  Age: 57 Year
  Sex: Female
  Weight: 90 kg

DRUGS (3)
  1. ZOLOFT [Suspect]
     Indication: DEPRESSION
     Dosage: 200 mg daily
     Route: 048
  2. TRAMAL - SLOW RELEASE [Concomitant]
     Indication: PAIN
     Dosage: 100 mg, 2x/day
  3. KLIOGEST [Concomitant]
     Indication: MENOPAUSE
     Dosage: 1 DF, daily
     Route: 048

REACTIONS (6)
  - Electrocardiogram QT prolonged [Recovered/Resolved]
  - Syncope [Recovered/Resolved]
  - Fall [Recovered/Resolved]
  - Joint injury [Recovered/Resolved]
  - Movement disorder [Recovered/Resolved]
  - Gastrooesophageal reflux disease [Recovered/Resolved]
